FAERS Safety Report 6646576-5 (Version None)
Quarter: 2010Q1

REPORT INFORMATION
  Report Type: 
  Country: None (occurrence: None)
  Receive Date: 20100323
  Receipt Date: 20100317
  Transmission Date: 20100710
  Serious: Yes (Death)
  Sender: FDA-Public Use
  Company Number: TR-ELI_LILLY_AND_COMPANY-TR201003004810

PATIENT
  Age: 66 Year
  Sex: Male

DRUGS (3)
  1. HUMULIN R [Suspect]
     Indication: DIABETES MELLITUS
     Dosage: 30 U, 3/D
     Route: 058
     Dates: start: 20090101
  2. HUMULIN N [Suspect]
     Indication: DIABETES MELLITUS
     Dosage: 32 U, EACH EVENING
     Route: 058
     Dates: start: 20090101
  3. METFORMIN HCL [Concomitant]
     Dosage: UNK, DAILY (1/D)
     Route: 065

REACTIONS (1)
  - PANCREATIC CARCINOMA [None]
